FAERS Safety Report 6173382-0 (Version None)
Quarter: 2009Q2

REPORT INFORMATION
  Report Type: 
  Country: None (occurrence: None)
  Receive Date: 20090428
  Receipt Date: 20090417
  Transmission Date: 20091009
  Serious: Yes (Other)
  Sender: FDA-Public Use
  Company Number: GXKR2009GB04806

PATIENT
  Age: 13 Month
  Sex: Male

DRUGS (5)
  1. SALBUTAMOL (NGX)(SALBUTAMOL) [Suspect]
     Dosage: 2.5 MG
  2. STERIOIDS NOS (NO INGREDIENTS/SUBSTANCES) [Suspect]
     Dosage: ORAL
     Route: 048
  3. IPRATROPIUM BROMIDE [Concomitant]
  4. HYDROCORTISONE [Concomitant]
  5. OXYGEN (OXYGEN) [Concomitant]

REACTIONS (9)
  - DIABETIC KETOACIDOSIS [None]
  - GLYCOSURIA [None]
  - HYPERGLYCAEMIA [None]
  - KETONURIA [None]
  - LACTIC ACIDOSIS [None]
  - METABOLIC ACIDOSIS [None]
  - TACHYCARDIA [None]
  - TACHYPNOEA [None]
  - TYPE 1 DIABETES MELLITUS [None]
